FAERS Safety Report 6415676-7 (Version None)
Quarter: 2009Q4

REPORT INFORMATION
  Report Type: 
  Country: None (occurrence: None)
  Receive Date: 20091027
  Receipt Date: 20091016
  Transmission Date: 20100525
  Serious: Yes (Other)
  Sender: FDA-Public Use
  Company Number: PL-JNJFOC-20091005942

PATIENT
  Age: 56 Year
  Sex: Female

DRUGS (3)
  1. REMICADE [Suspect]
     Indication: CROHN'S DISEASE
     Route: 042
  2. MESALAZINE (5-ASA) [Concomitant]
  3. AZATHIOPRINE [Concomitant]

REACTIONS (1)
  - VISUAL IMPAIRMENT [None]
